FAERS Safety Report 5062753-1 (Version None)
Quarter: 2006Q3

REPORT INFORMATION
  Report Type: 
  Country: None (occurrence: None)
  Receive Date: 20060724
  Receipt Date: 20060711
  Transmission Date: 20061208
  Serious: Yes (Death, Life-Threatening)
  Sender: FDA-Public Use
  Company Number: MC200600480

PATIENT
  Age: 75 Year
  Sex: Male
  Weight: 76 kg

DRUGS (2)
  1. ANGIOMAX [Suspect]
     Indication: PERCUTANEOUS CORONARY INTERVENTION
     Dosage: SEE IMAGE
     Route: 042
     Dates: start: 20060701, end: 20060701
  2. REOPRO [Suspect]
     Indication: PERCUTANEOUS CORONARY INTERVENTION
     Dosage: SEE IMAGE
     Route: 040
     Dates: start: 20060701, end: 20060701

REACTIONS (9)
  - CARDIOGENIC SHOCK [None]
  - CORONARY ARTERY DISEASE [None]
  - GASTROINTESTINAL HAEMORRHAGE [None]
  - HAEMATOCRIT DECREASED [None]
  - HAEMOGLOBIN DECREASED [None]
  - HYPOVOLAEMIC SHOCK [None]
  - PLATELET COUNT DECREASED [None]
  - RESPIRATORY FAILURE [None]
  - UROGENITAL HAEMORRHAGE [None]
